FAERS Safety Report 6236841-8 (Version None)
Quarter: 2009Q2

REPORT INFORMATION
  Report Type: 
  Country: None (occurrence: None)
  Receive Date: 20090619
  Receipt Date: 20090302
  Transmission Date: 20091009
  Serious: No
  Sender: FDA-Public Use
  Company Number: US-BAYER-200910734BCC

PATIENT
  Age: 96 Year
  Sex: Female
  Weight: 52 kg

DRUGS (3)
  1. ALEVE (CAPLET) [Suspect]
     Indication: ARTHRITIS
     Dosage: BOTTLE COUNT 50 + 50% / USED TO TAKE 1 OR 2  CAPLETS, AS NEEDED
     Dates: start: 20040101
  2. NORVASC [Concomitant]
  3. LEVOTHYRODINE [Concomitant]

REACTIONS (2)
  - DRY MOUTH [None]
  - URTICARIA [None]
